FAERS Safety Report 20176148 (Version 1)
Quarter: 2021Q4

REPORT INFORMATION
  Report Type: Spontaneous
  Country: JP (occurrence: JP)
  Receive Date: 20211213
  Receipt Date: 20211213
  Transmission Date: 20220303
  Serious: Yes (Other)
  Sender: FDA-Public Use
  Company Number: JP-PFIZER INC-202101691375

PATIENT
  Age: 5 Decade
  Sex: Male

DRUGS (2)
  1. METHYLPREDNISOLONE [Suspect]
     Active Substance: METHYLPREDNISOLONE
     Indication: Nephropathy
     Dosage: 500 MG, DAILY
  2. PREDNISOLONE [Suspect]
     Active Substance: PREDNISOLONE
     Indication: Nephropathy
     Dosage: 50 MG, DAILY
     Route: 048

REACTIONS (3)
  - Hepatic encephalopathy [Unknown]
  - Plasma protein metabolism disorder [Unknown]
  - Off label use [Unknown]
